FAERS Safety Report 5035475-0 (Version None)
Quarter: 2006Q2

REPORT INFORMATION
  Report Type: 
  Country: None (occurrence: None)
  Receive Date: 20060526
  Receipt Date: 20060321
  Transmission Date: 20061013
  Serious: No
  Sender: FDA-Public Use
  Company Number: FABR-11453

PATIENT
  Age: 53 Year
  Sex: Female

DRUGS (2)
  1. FABRAZYME [Suspect]
     Indication: ACCIDENTAL EXPOSURE
  2. FABRAZYME [Suspect]
     Indication: MEDICATION ERROR

REACTIONS (3)
  - ANXIETY [None]
  - PRURITUS [None]
  - RASH ERYTHEMATOUS [None]
